FAERS Safety Report 5242730-8 (Version None)
Quarter: 2007Q1

REPORT INFORMATION
  Report Type: 
  Country: None (occurrence: None)
  Receive Date: 20070221
  Receipt Date: 20070213
  Transmission Date: 20070707
  Serious: Yes (Death)
  Sender: FDA-Public Use
  Company Number: GB-GLAXOSMITHKLINE-B0458991A

PATIENT
  Age: 17 Year
  Sex: Female
  Weight: 52 kg

DRUGS (5)
  1. LAMOTRIGINE [Suspect]
     Indication: EPILEPSY
     Route: 048
     Dates: start: 20060130
  2. CINNARIZINE [Concomitant]
     Indication: VOMITING
     Dosage: 15MG THREE TIMES PER DAY
     Route: 048
     Dates: start: 20030101
  3. CLOBAZAM [Concomitant]
     Indication: EPILEPSY
     Route: 048
     Dates: start: 20040101
  4. ETHINYL ESTRADIOL TAB [Concomitant]
     Indication: ORAL CONTRACEPTION
     Route: 048
     Dates: start: 20040101
  5. VALPROATE SODIUM [Concomitant]
     Indication: EPILEPSY
     Dosage: 500MG THREE TIMES PER DAY
     Route: 048
     Dates: start: 20050101

REACTIONS (1)
  - ACUTE HEPATIC FAILURE [None]
